FAERS Safety Report 5049726-X (Version None)
Quarter: 2006Q3

REPORT INFORMATION
  Report Type: 
  Country: None (occurrence: None)
  Receive Date: 20060707
  Receipt Date: 20060621
  Transmission Date: 20061208
  Serious: Yes (Hospitalization, Other)
  Sender: FDA-Public Use
  Company Number: TRP_0799_2006

PATIENT
  Age: 47 Year
  Sex: Male

DRUGS (8)
  1. RIBASPHERE [Suspect]
     Indication: HEPATITIS C
     Dosage: DF PO
     Route: 048
     Dates: start: 20060412
  2. PEG-INTRON [Suspect]
     Indication: HEPATITIS C
     Dosage: DF SC
     Route: 058
     Dates: start: 20060412
  3. CAPOTEN [Concomitant]
  4. GLUCOTROL XL [Concomitant]
  5. LAMICTAL [Concomitant]
  6. LANTUS [Concomitant]
  7. PROTONIX [Concomitant]
  8. HERBAL MEDICATION [Concomitant]

REACTIONS (10)
  - ASTHENIA [None]
  - BALANCE DISORDER [None]
  - FEELING ABNORMAL [None]
  - HAEMOGLOBIN DECREASED [None]
  - INSOMNIA [None]
  - LOCALISED INFECTION [None]
  - PERIPHERAL MOTOR NEUROPATHY [None]
  - PLATELET COUNT DECREASED [None]
  - RED BLOOD CELL COUNT DECREASED [None]
  - WHITE BLOOD CELL COUNT DECREASED [None]
